FAERS Safety Report 5560986-9 (Version None)
Quarter: 2007Q4

REPORT INFORMATION
  Report Type: 
  Country: None (occurrence: None)
  Receive Date: 20071215
  Receipt Date: 20071130
  Transmission Date: 20080405
  Serious: No
  Sender: FDA-Public Use
  Company Number: US-ABBOTT-07P-163-0426977-00

PATIENT
  Sex: Female

DRUGS (4)
  1. HUMIRA [Suspect]
     Indication: CROHN'S DISEASE
     Route: 058
     Dates: start: 20070101, end: 20070101
  2. HUMIRA [Suspect]
     Route: 058
     Dates: start: 20070101, end: 20070101
  3. HUMIRA [Suspect]
     Route: 058
     Dates: start: 20070101, end: 20070101
  4. HUMIRA [Suspect]
     Route: 058
     Dates: start: 20070901

REACTIONS (4)
  - ABDOMINAL PAIN [None]
  - ACCIDENTAL EXPOSURE [None]
  - DRUG INEFFECTIVE [None]
  - RECTAL HAEMORRHAGE [None]
